FAERS Safety Report 5629049-8 (Version None)
Quarter: 2008Q1

REPORT INFORMATION
  Report Type: 
  Country: None (occurrence: None)
  Receive Date: 20080216
  Receipt Date: 20080110
  Transmission Date: 20080703
  Serious: No
  Sender: FDA-Public Use
  Company Number: US-BAXTER-2008BH000128

PATIENT
  Age: 46 Year
  Sex: Male
  Weight: 140 kg

DRUGS (9)
  1. HEPARIN SODIUM [Suspect]
     Indication: ANTICOAGULANT THERAPY
     Route: 010
  2. PHOSLO [Concomitant]
     Indication: HYPERPHOSPHATAEMIA
     Route: 048
  3. LISINOPRIL [Concomitant]
     Indication: BLOOD PRESSURE MANAGEMENT
     Route: 048
  4. RENAGEL [Concomitant]
     Indication: HYPERPHOSPHATAEMIA
     Route: 048
  5. EPOGEN [Concomitant]
     Indication: ANAEMIA
     Route: 042
  6. ZEMPLAR [Concomitant]
     Indication: HYPERPARATHYROIDISM
     Route: 042
  7. VENOFER [Concomitant]
     Indication: ANAEMIA
     Route: 042
  8. BENADRYL [Concomitant]
     Indication: DRUG USE FOR UNKNOWN INDICATION
     Route: 042
  9. SENSIPAR [Concomitant]
     Indication: HYPERPARATHYROIDISM SECONDARY
     Route: 048

REACTIONS (7)
  - DYSPNOEA [None]
  - FEELING HOT [None]
  - FLUSHING [None]
  - HYPERHIDROSIS [None]
  - HYPOTENSION [None]
  - NAUSEA [None]
  - THIRST [None]
